FAERS Safety Report 20298453 (Version 1)
Quarter: 2022Q1

REPORT INFORMATION
  Report Type: Spontaneous
  Country: US (occurrence: None)
  Receive Date: 20220104
  Receipt Date: 20220104
  Transmission Date: 20220423
  Serious: Yes (Hospitalization)
  Sender: FDA-Public Use
  Company Number: None

PATIENT
  Age: 55 Year
  Sex: Male

DRUGS (1)
  1. CHLORTHALIDONE [Suspect]
     Active Substance: CHLORTHALIDONE
     Dates: start: 20210507, end: 20211101

REACTIONS (4)
  - Hypotension [None]
  - Syncope [None]
  - Loss of consciousness [None]
  - Coronary artery occlusion [None]

NARRATIVE: CASE EVENT DATE: 20211010
